FAERS Safety Report 20727338 (Version 1)
Quarter: 2022Q2

REPORT INFORMATION
  Report Type: Spontaneous
  Country: US (occurrence: US)
  Receive Date: 20220419
  Receipt Date: 20220419
  Transmission Date: 20220721
  Serious: Yes (Other)
  Sender: FDA-Public Use
  Company Number: US-GILEAD-2022-0578406

PATIENT
  Sex: Female

DRUGS (25)
  1. VEMLIDY [Suspect]
     Active Substance: TENOFOVIR ALAFENAMIDE FUMARATE
     Indication: Chronic hepatitis B
     Dosage: 1 DOSAGE FORM, QD
     Route: 048
  2. GABAPENTIN [Concomitant]
     Active Substance: GABAPENTIN
     Dosage: INCREASED FROM 600MG TO 1100MG
  3. OMEGA 3 6 9 COMPLEX [Concomitant]
  4. VITAMINS NOS [Concomitant]
     Active Substance: VITAMINS
  5. VITAMIN D3 [Concomitant]
     Active Substance: CHOLECALCIFEROL
  6. PROBIOTICS NOS [Concomitant]
     Active Substance: PROBIOTICS NOS
  7. ZYRTEC [Concomitant]
     Active Substance: CETIRIZINE HYDROCHLORIDE
  8. HYDROXYCHLOROQUINE SULFATE [Concomitant]
     Active Substance: HYDROXYCHLOROQUINE SULFATE
  9. MONTELUKAST SODIUM [Concomitant]
     Active Substance: MONTELUKAST SODIUM
  10. LAMICTAL [Concomitant]
     Active Substance: LAMOTRIGINE
  11. KLONOPIN [Concomitant]
     Active Substance: CLONAZEPAM
  12. QUERCETIN [Concomitant]
     Active Substance: QUERCETIN
  13. SEROQUEL [Concomitant]
     Active Substance: QUETIAPINE FUMARATE
  14. PEPPERMINT OIL [Concomitant]
     Active Substance: PEPPERMINT OIL
  15. VITAMIN C [Concomitant]
     Active Substance: ASCORBIC ACID
  16. CLARITIN [Concomitant]
     Active Substance: LORATADINE
  17. CLOBETASOL PROPIONATE [Concomitant]
     Active Substance: CLOBETASOL PROPIONATE
  18. PANTHENOL [Concomitant]
     Active Substance: PANTHENOL
  19. SYSTANE (HYPROMELLOSE 2910 (4000 MPA.S)) [Concomitant]
     Active Substance: HYPROMELLOSE 2910 (4000 MPA.S)
  20. CANNABIDIOL [Concomitant]
     Active Substance: CANNABIDIOL
  21. TRIAMCINOLONE [Concomitant]
     Active Substance: TRIAMCINOLONE
  22. PREDNISONE [Concomitant]
     Active Substance: PREDNISONE
  23. DICLOFENAC EPOLAMINE [Concomitant]
     Active Substance: DICLOFENAC EPOLAMINE
  24. ALLOPURINOL [Concomitant]
     Active Substance: ALLOPURINOL
  25. PROZAC [Concomitant]
     Active Substance: FLUOXETINE HYDROCHLORIDE

REACTIONS (3)
  - Osteoporosis [Unknown]
  - Uterine leiomyoma [Unknown]
  - Feeling abnormal [Unknown]
